FAERS Safety Report 17956229 (Version 3)
Quarter: 2020Q3

REPORT INFORMATION
  Report Type: Spontaneous
  Country: US (occurrence: US)
  Receive Date: 20200629
  Receipt Date: 20200828
  Transmission Date: 20201103
  Serious: No
  Sender: FDA-Public Use
  Company Number: US-AMGEN INC.-USASP2020102089

PATIENT

DRUGS (2)
  1. AIMOVIG [Suspect]
     Active Substance: ERENUMAB-AOOE
     Dosage: 140 MILLIGRAM, QMO
     Route: 065
  2. AIMOVIG [Suspect]
     Active Substance: ERENUMAB-AOOE
     Indication: VESTIBULAR MIGRAINE
     Dosage: 70 MILLIGRAM (TWICE A MONTH)
     Route: 065

REACTIONS (4)
  - Off label use [Unknown]
  - Concussion [Unknown]
  - Hair growth abnormal [Not Recovered/Not Resolved]
  - Adverse event [Unknown]
